FAERS Safety Report 15814691 (Version 3)
Quarter: 2019Q3

REPORT INFORMATION
  Report Type: Report from Study
  Country: US (occurrence: US)
  Receive Date: 20190111
  Receipt Date: 20190722
  Transmission Date: 20191004
  Serious: Yes (Death, Hospitalization, Disabling)
  Sender: FDA-Public Use
  Company Number: US-ACTELION-A-NJ2018-167623

PATIENT
  Age: 64 Year
  Sex: Male
  Weight: 135.6 kg

DRUGS (4)
  1. OPSUMIT [Suspect]
     Active Substance: MACITENTAN
     Dosage: 10 MG, QD
     Route: 048
  2. TADALAFIL. [Concomitant]
     Active Substance: TADALAFIL
  3. OPSUMIT [Suspect]
     Active Substance: MACITENTAN
     Indication: PULMONARY ARTERIAL HYPERTENSION
     Dosage: UNK
     Route: 048
     Dates: start: 20171129, end: 20181129
  4. ELIQUIS [Concomitant]
     Active Substance: APIXABAN

REACTIONS (22)
  - Hospice care [Fatal]
  - Mental status changes [Not Recovered/Not Resolved]
  - Hepatocellular carcinoma [Not Recovered/Not Resolved]
  - Mechanical ventilation [Recovered/Resolved]
  - Thrombocytopenia [Not Recovered/Not Resolved]
  - Cellulitis [Recovered/Resolved]
  - Hypotension [Not Recovered/Not Resolved]
  - Deep vein thrombosis [Unknown]
  - Shock haemorrhagic [Fatal]
  - Haemorrhage [Recovered/Resolved]
  - Oedema [Recovered/Resolved]
  - Erythema [Recovered/Resolved]
  - Acute respiratory failure [Recovered/Resolved]
  - Chronic hepatic failure [Fatal]
  - Sinus congestion [Recovered/Resolved]
  - Procedural pain [Not Recovered/Not Resolved]
  - Dysphagia [Not Recovered/Not Resolved]
  - Lactic acidosis [Recovered/Resolved]
  - Acute kidney injury [Not Recovered/Not Resolved]
  - Delirium [Not Recovered/Not Resolved]
  - Blood bilirubin increased [Unknown]
  - Hepatic cirrhosis [Fatal]

NARRATIVE: CASE EVENT DATE: 20180103
